FAERS Safety Report 7842126-6 (Version None)
Quarter: 2011Q4

REPORT INFORMATION
  Report Type: 
  Country: None (occurrence: None)
  Receive Date: 20111024
  Receipt Date: 20111024
  Transmission Date: 20120403
  Serious: Yes (Life-Threatening)
  Sender: FDA-Public Use
  Company Number: None

PATIENT
  Age: 23 Year
  Sex: Female
  Weight: 45.3597 kg

DRUGS (1)
  1. XOPENEX HFA [Suspect]
     Indication: ASTHMA
     Dosage: 45 MCG AS NEEDED
     Dates: start: 20110805, end: 20110827

REACTIONS (2)
  - RASH [None]
  - HYPERSENSITIVITY [None]
